FAERS Safety Report 14071135 (Version 1)
Quarter: 2017Q4

REPORT INFORMATION
  Report Type: Spontaneous
  Country: US (occurrence: US)
  Receive Date: 20171010
  Receipt Date: 20171010
  Transmission Date: 20180321
  Serious: No
  Sender: FDA-Public Use
  Company Number: US-JNJFOC-20170929726

PATIENT
  Sex: Male

DRUGS (1)
  1. IMBRUVICA [Suspect]
     Active Substance: IBRUTINIB
     Indication: MANTLE CELL LYMPHOMA STAGE IV
     Route: 048
     Dates: start: 20150212

REACTIONS (5)
  - Hypertension [Unknown]
  - Thrombocytopenia [Unknown]
  - Type V hyperlipidaemia [Unknown]
  - Sinusitis [Unknown]
  - Ecchymosis [Unknown]
